FAERS Safety Report 6012115-5 (Version None)
Quarter: 2008Q4

REPORT INFORMATION
  Report Type: 
  Country: None (occurrence: None)
  Receive Date: 20081216
  Receipt Date: 20080620
  Transmission Date: 20090506
  Serious: Yes (Other)
  Sender: FDA-Public Use
  Company Number: US-WYE-H04637308

PATIENT
  Age: 39 Year
  Sex: Female
  Weight: 54.93 kg

DRUGS (3)
  1. EFFEXOR XR [Suspect]
     Indication: PREMENSTRUAL SYNDROME
     Dosage: 37.5 MG, 1X PER 1 DAY, ORAL
     Route: 048
     Dates: start: 20050715, end: 20080601
  2. SYNTHROID [Concomitant]
  3. CALCIUM WITH VITAMIN D (CALCIUM PHOSPHATE/CALCIUM SODIUM LACTATE/ERGOC [Concomitant]

REACTIONS (1)
  - BLOOD CREATINE PHOSPHOKINASE INCREASED [None]
